FAERS Safety Report 7137120-7 (Version None)
Quarter: 2010Q4

REPORT INFORMATION
  Report Type: 
  Country: None (occurrence: None)
  Receive Date: 20101206
  Receipt Date: 20070509
  Transmission Date: 20110411
  Serious: Yes (Death)
  Sender: FDA-Public Use
  Company Number: US-ACTELION-A-US2006-15664

PATIENT

DRUGS (21)
  1. ILOPROST INHALATION SOLUTION 5UG US [Suspect]
     Indication: PULMONARY ARTERIAL HYPERTENSION
     Dosage: 5 UG, 6 X DAY
     Route: 055
     Dates: start: 20060829, end: 20070509
  2. ESTRADIOL [Concomitant]
  3. NEOMYCIN SULFATE [Concomitant]
  4. OMEPRAZOLE [Concomitant]
  5. ZINC SULFATE [Concomitant]
  6. LACTULOSE [Concomitant]
  7. MEPHYTON [Concomitant]
  8. FUROSEMIDE [Concomitant]
  9. SPIRONOLACTONE [Concomitant]
  10. MAGNESIUM [Concomitant]
  11. CIPROFLOXACIN [Concomitant]
  12. XIFAXAN [Concomitant]
  13. FISH OIL [Concomitant]
  14. DAILY MULTIVITAMIN [Concomitant]
  15. SILYBUM MARIANUM [Concomitant]
  16. GLUCOSAMINE SULFATE W/CHONDROITIN [Concomitant]
  17. TYLENOL PM [Concomitant]
  18. CALCIUM [Concomitant]
  19. ASCORBIC ACID [Concomitant]
  20. GARLIC [Concomitant]
  21. QUININE SULFATE [Concomitant]

REACTIONS (7)
  - BURNING SENSATION [None]
  - DEATH [None]
  - DIARRHOEA [None]
  - HYPOAESTHESIA [None]
  - NAUSEA [None]
  - PERIPHERAL COLDNESS [None]
  - VOMITING [None]
